FAERS Safety Report 8923224 (Version 1)
Quarter: 2012Q4

REPORT INFORMATION
  Report Type: 
  Country: US (occurrence: US)
  Receive Date: 20121123
  Receipt Date: 20121123
  Transmission Date: 20130627
  Serious: No
  Sender: FDA-Public Use
  Company Number: US-PFIZER INC-2012293751

PATIENT
  Age: 48 Year
  Sex: Female
  Weight: 61.22 kg

DRUGS (2)
  1. CHANTIX [Suspect]
     Indication: SMOKING CESSATION THERAPY
     Dosage: 0.5 mg, 1x/day
     Dates: start: 201211, end: 201211
  2. CHANTIX [Suspect]
     Dosage: 1 mg, 2x/day
     Dates: start: 201211

REACTIONS (1)
  - Abdominal pain upper [Not Recovered/Not Resolved]
